FAERS Safety Report 16669917 (Version 4)
Quarter: 2019Q3

REPORT INFORMATION
  Report Type: Spontaneous
  Country: BE (occurrence: BE)
  Receive Date: 20190805
  Receipt Date: 20190911
  Transmission Date: 20191004
  Serious: Yes (Life-Threatening, Hospitalization, Congenital Anomaly)
  Sender: FDA-Public Use
  Company Number: BE-JNJFOC-20190734884

PATIENT
  Age: 20 Year
  Sex: Male
  Weight: 105 kg

DRUGS (15)
  1. CEFAZOLINE [Suspect]
     Active Substance: CEFAZOLIN SODIUM
     Indication: ANTIBIOTIC PROPHYLAXIS
     Dosage: ; IN TOTAL
     Route: 042
     Dates: start: 20190311, end: 20190311
  2. PARACETAMOL [Suspect]
     Active Substance: ACETAMINOPHEN
     Indication: PERIOPERATIVE ANALGESIA
     Route: 042
     Dates: start: 20190311, end: 20190311
  3. TRACRIUM [Concomitant]
     Active Substance: ATRACURIUM BESYLATE
     Indication: SURGERY
     Dosage: ; IN TOTAL
     Route: 042
     Dates: start: 20190311, end: 20190311
  4. PARACETAMOL UNSPECIFIED [Suspect]
     Active Substance: ACETAMINOPHEN
     Indication: ANALGESIC THERAPY
     Route: 048
     Dates: start: 20190311, end: 20190314
  5. LISINOPRIL. [Concomitant]
     Active Substance: LISINOPRIL
     Indication: SURGERY
     Dosage: LISINOPRIL 2%; IN TOTAL
     Route: 042
     Dates: start: 20190311, end: 20190311
  6. IBUPROFEN UNKNOWN [Suspect]
     Active Substance: IBUPROFEN
     Indication: ANALGESIC THERAPY
     Dosage: UNKNOWN DOSE 3 TABLETS 3X / D PDT 3-4 DAYS POST OP
     Route: 048
     Dates: start: 20190311, end: 20190314
  7. SEVORANE [Suspect]
     Active Substance: SEVOFLURANE
     Indication: GENERAL ANAESTHESIA
     Dosage: RECEIVED 40ML ON MARCH 11TH DURING THE MASTECTOMY. PREVIOUSLY THE PATIENT HAD ALREADY BEEN EXPOSED T
     Route: 055
     Dates: start: 20190311, end: 20190311
  8. TARADYL [Suspect]
     Active Substance: KETOROLAC TROMETHAMINE
     Indication: ANALGESIC THERAPY
     Dosage: IN TOTAL
     Route: 042
     Dates: start: 20190311, end: 20190311
  9. LITICAN                            /00690801/ [Concomitant]
     Active Substance: ALIZAPRIDE
     Indication: NAUSEA
     Dosage: IN TOTAL
     Route: 042
     Dates: start: 20190311, end: 20190311
  10. KETAMINE [Concomitant]
     Active Substance: KETAMINE
     Indication: SURGERY
     Dosage: IN TOTAL
     Route: 042
     Dates: start: 20190311, end: 20190311
  11. DEXAMETHASONE 4 MG [Concomitant]
     Active Substance: DEXAMETHASONE
     Indication: GASTROINTESTINAL DISORDER PROPHYLAXIS
     Dosage: ; IN TOTAL
     Route: 042
     Dates: start: 20190311, end: 20190311
  12. CEFAZOLINE [Suspect]
     Active Substance: CEFAZOLIN SODIUM
     Indication: SURGERY
  13. PROPOLIPID [Concomitant]
     Active Substance: PROPOFOL
     Indication: INDUCTION OF ANAESTHESIA
     Dosage: IN TOTAL
     Route: 042
     Dates: start: 20190311, end: 20190311
  14. CATAPRESSAN [Concomitant]
     Active Substance: CLONIDINE
     Indication: PRODUCT USED FOR UNKNOWN INDICATION
     Dosage: ; IN TOTAL
     Route: 042
     Dates: start: 20190311, end: 20190311
  15. PROPOLIPID [Concomitant]
     Active Substance: PROPOFOL
     Indication: SURGERY
     Route: 065

REACTIONS (1)
  - Hepatitis fulminant [Recovering/Resolving]

NARRATIVE: CASE EVENT DATE: 20190313
